FAERS Safety Report 17858494 (Version 2)
Quarter: 2020Q2

REPORT INFORMATION
  Report Type: Report from Study
  Country: None (occurrence: US)
  Receive Date: 20200604
  Receipt Date: 20200605
  Transmission Date: 20200714
  Serious: No
  Sender: FDA-Public Use
  Company Number: US-US WORLDMEDS, LLC-USW201909-001781

PATIENT
  Sex: Female

DRUGS (2)
  1. APOKYN [Suspect]
     Active Substance: APOMORPHINE HYDROCHLORIDE
     Indication: PARKINSON^S DISEASE
     Route: 058
     Dates: start: 201811
  2. INBRIJA [Suspect]
     Active Substance: LEVODOPA

REACTIONS (4)
  - Injection site urticaria [Unknown]
  - Sleep paralysis [Unknown]
  - Feeling cold [Unknown]
  - Tremor [Unknown]
